FAERS Safety Report 6680344-3 (Version None)
Quarter: 2010Q2

REPORT INFORMATION
  Report Type: 
  Country: None (occurrence: None)
  Receive Date: 20100412
  Receipt Date: 20100326
  Transmission Date: 20101027
  Serious: Yes (Hospitalization, Disabling)
  Sender: FDA-Public Use
  Company Number: DSA_42879_2010

PATIENT
  Sex: Female

DRUGS (18)
  1. WELLBUTRIN XL [Suspect]
     Dosage: (300 MG, TOTAL DAILY DOSE ORAL)
     Route: 048
     Dates: start: 20081106, end: 20100101
  2. WELLBUTRIN [Suspect]
     Dosage: (450 MG, TOTAL DAILY DOSE ORAL), (300 MG, TOTAL DAILY DOSE ORAL), (150 MG, TOTAL DAILY DOSE ORAL)
     Route: 048
     Dates: start: 20081106, end: 20090702
  3. WELLBUTRIN [Suspect]
     Dosage: (450 MG, TOTAL DAILY DOSE ORAL), (300 MG, TOTAL DAILY DOSE ORAL), (150 MG, TOTAL DAILY DOSE ORAL)
     Route: 048
     Dates: start: 20090702, end: 20091211
  4. WELLBUTRIN [Suspect]
     Dosage: (450 MG, TOTAL DAILY DOSE ORAL), (300 MG, TOTAL DAILY DOSE ORAL), (150 MG, TOTAL DAILY DOSE ORAL)
     Route: 048
     Dates: start: 20091211, end: 20100101
  5. CLOZARIL [Suspect]
     Dosage: (400 MG, TOTAL DAILY DOSE ORAL), (250 MG, TOTAL DAILY DOSE ORAL)
     Route: 048
     Dates: start: 20100121, end: 20100101
  6. CLOZARIL [Suspect]
     Dosage: (400 MG, TOTAL DAILY DOSE ORAL), (250 MG, TOTAL DAILY DOSE ORAL)
     Route: 048
     Dates: start: 20090601, end: 20100121
  7. DEPO PROVERA /00115202/ [Concomitant]
  8. CHANTIX /05703001/ [Concomitant]
  9. ATIVAN [Concomitant]
  10. OXYBUTYNIN CHLORIDE [Concomitant]
  11. RISPERDAL [Concomitant]
  12. FERROUS SULFATE TAB [Concomitant]
  13. BENADRYL [Concomitant]
  14. LAMOTRIGINE [Concomitant]
  15. ZONEGRAN [Concomitant]
  16. DESMOPRESSIN ACETATE [Concomitant]
  17. EFFEXOR /01233802/ [Concomitant]
  18. LASIX [Concomitant]

REACTIONS (10)
  - ABNORMAL BEHAVIOUR [None]
  - BLOOD CHLORIDE DECREASED [None]
  - CARBON DIOXIDE DECREASED [None]
  - CONTUSION [None]
  - CONVULSION [None]
  - FALL [None]
  - HEAD INJURY [None]
  - HYPONATRAEMIA [None]
  - SINUS TACHYCARDIA [None]
  - URINARY TRACT INFECTION [None]
